FAERS Safety Report 24894105 (Version 1)
Quarter: 2025Q1

REPORT INFORMATION
  Report Type: Spontaneous
  Country: CN (occurrence: CN)
  Receive Date: 20250128
  Receipt Date: 20250128
  Transmission Date: 20250409
  Serious: Yes (Other)
  Sender: ROCHE
  Company Number: CN-ROCHE-10000186694

PATIENT
  Age: 32 Year
  Sex: Female

DRUGS (4)
  1. RITUXIMAB [Suspect]
     Active Substance: RITUXIMAB
     Indication: Retroperitoneal fibrosis
     Route: 065
  2. METHYLPREDNISOLONE [Suspect]
     Active Substance: METHYLPREDNISOLONE
     Indication: Retroperitoneal fibrosis
     Route: 065
  3. TACROLIMUS [Suspect]
     Active Substance: TACROLIMUS
     Indication: Retroperitoneal fibrosis
     Route: 065
  4. BELIMUMAB [Suspect]
     Active Substance: BELIMUMAB
     Indication: Retroperitoneal fibrosis
     Route: 065

REACTIONS (4)
  - Respiratory tract infection [Unknown]
  - Pneumonia [Unknown]
  - Herpes zoster [Unknown]
  - Disease progression [Unknown]
